FAERS Safety Report 16142665 (Version 2)
Quarter: 2019Q2

REPORT INFORMATION
  Report Type: Spontaneous
  Country: TR (occurrence: TR)
  Receive Date: 20190401
  Receipt Date: 20190503
  Transmission Date: 20190711
  Serious: Yes (Hospitalization, Other)
  Sender: FDA-Public Use
  Company Number: TR-BRISTOL-MYERS SQUIBB COMPANY-BMS-2019-021165

PATIENT
  Age: 67 Year
  Sex: Male

DRUGS (1)
  1. OPDIVO [Suspect]
     Active Substance: NIVOLUMAB
     Indication: LUNG NEOPLASM MALIGNANT
     Dosage: 210 MILLIGRAM, Q2WK
     Route: 065
     Dates: start: 201902

REACTIONS (5)
  - Dizziness [Recovering/Resolving]
  - Constipation [Recovering/Resolving]
  - Cerebral artery embolism [Recovering/Resolving]
  - Epistaxis [Recovering/Resolving]
  - Aphasia [Recovering/Resolving]
